FAERS Safety Report 5065635-4 (Version None)
Quarter: 2006Q3

REPORT INFORMATION
  Report Type: 
  Country: None (occurrence: None)
  Receive Date: 20060724
  Receipt Date: 20051122
  Transmission Date: 20061208
  Serious: Yes (Hospitalization)
  Sender: FDA-Public Use
  Company Number: 6018283

PATIENT
  Age: 90 Year
  Sex: Female

DRUGS (13)
  1. LEVOTHYROXINE SODIUM [Suspect]
     Indication: DRUG USE FOR UNKNOWN INDICATION
     Dosage: 75 MCG (75  MCG, 1 IN 1 D); ORAL
     Route: 048
     Dates: start: 20051014
  2. PREVISCAN (FLUINDIONE) [Suspect]
     Indication: DRUG USE FOR UNKNOWN INDICATION
     Dosage: 20 MG, TABLET); ORAL (SEE IMAGE)
     Route: 048
     Dates: start: 20051015, end: 20051016
  3. PREVISCAN (FLUINDIONE) [Suspect]
     Indication: DRUG USE FOR UNKNOWN INDICATION
     Dosage: 20 MG, TABLET); ORAL (SEE IMAGE)
     Route: 048
     Dates: start: 20051014
  4. PREVISCAN (FLUINDIONE) [Suspect]
     Indication: DRUG USE FOR UNKNOWN INDICATION
     Dosage: 20 MG, TABLET); ORAL (SEE IMAGE)
     Route: 048
     Dates: start: 20051017
  5. ZYLORIC (200 MG, TABLET) (ALLOPURINOL) [Concomitant]
     Dosage: 200 MG (200 MG, 1 IN 1 D); ORAL
     Route: 047
     Dates: start: 20051014
  6. MIANSERINE (MIANSERIN HYDROCHLORIDE [Suspect]
     Indication: DRUG USE FOR UNKNOWN INDICATION
     Dosage: 1 DOSAGE FORMS (1 DOSAGE FORMS, 1 D); ORAL
     Route: 048
     Dates: start: 20051014
  7. RAMIPRIL [Concomitant]
  8. DEROXAT (20 MG, TABLET) (PAROXETINE HYDROCHLORIDE) [Concomitant]
  9. HEPT-A-MYL (HEPTAMINOL HYDROCHLORIDE) [Concomitant]
  10. SPECIAFOLDINE (FOLIC ACID) [Concomitant]
  11. FERROUS SULFATE TAB [Concomitant]
  12. LASIX [Concomitant]
  13. OMEPRAZOLE [Concomitant]

REACTIONS (4)
  - DRUG INTERACTION [None]
  - HAEMATOMA [None]
  - INTERNATIONAL NORMALISED RATIO INCREASED [None]
  - MOUTH HAEMORRHAGE [None]
